FAERS Safety Report 7115052-8 (Version None)
Quarter: 2010Q4

REPORT INFORMATION
  Report Type: 
  Country: None (occurrence: None)
  Receive Date: 20101122
  Receipt Date: 20101112
  Transmission Date: 20110411
  Serious: Yes (Hospitalization)
  Sender: FDA-Public Use
  Company Number: US-BAYER-201046861GPV

PATIENT
  Age: 26 Year
  Sex: Female

DRUGS (4)
  1. MOXIFLOXACIN [Suspect]
     Indication: PNEUMONIA
     Route: 042
  2. STEROIDS [Concomitant]
     Indication: ASTHMA
  3. ALBUTEROL [Concomitant]
     Indication: ASTHMA
  4. IPRATROPIUM BROMIDE [Concomitant]
     Indication: ASTHMA

REACTIONS (3)
  - OXYGEN SATURATION DECREASED [None]
  - PNEUMONIA [None]
  - WHITE BLOOD CELL COUNT INCREASED [None]
